FAERS Safety Report 11625771 (Version 2)
Quarter: 2016Q1

REPORT INFORMATION
  Report Type: Spontaneous
  Country: US (occurrence: US)
  Receive Date: 20151013
  Receipt Date: 20160108
  Transmission Date: 20160525
  Serious: No
  Sender: FDA-Public Use
  Company Number: US-PFIZER INC-2015326945

PATIENT
  Age: 66 Year
  Sex: Male
  Weight: 127 kg

DRUGS (3)
  1. ASPIRIN. [Concomitant]
     Active Substance: ASPIRIN
     Indication: MYOCARDIAL INFARCTION
     Dosage: 81 MG, DAILY
     Dates: start: 201310
  2. SUTENT [Suspect]
     Active Substance: SUNITINIB MALATE
     Indication: RENAL CANCER
     Dosage: 37.5 MG, 1X/DAY FOR 28 DAYS AND THEN OFF FOR 14 DAYS
     Dates: start: 2015, end: 2015
  3. SUTENT [Suspect]
     Active Substance: SUNITINIB MALATE
     Dosage: 35 MG, 1X/DAY
     Dates: start: 201504, end: 201505

REACTIONS (2)
  - Disease progression [Unknown]
  - Renal cancer [Unknown]

NARRATIVE: CASE EVENT DATE: 2015
